FAERS Safety Report 8655288 (Version 5)
Quarter: 2012Q4

REPORT INFORMATION
  Report Type: 
  Country: US (occurrence: US)
  Receive Date: 20120709
  Receipt Date: 20120928
  Transmission Date: 20130627
  Serious: Yes (Death, Hospitalization, Other)
  Sender: FDA-Public Use
  Company Number: US-CELGENEUS-163-21880-12070355

PATIENT
  Age: 84 Year
  Sex: Male

DRUGS (20)
  1. CIPROFLOXACIN HCL [Concomitant]
     Indication: URINARY TRACT INFECTION
     Dosage: 1000 Milligram
     Route: 048
     Dates: start: 20120608
  2. COD LIVER OIL [Concomitant]
     Indication: DRUG USE FOR UNKNOWN INDICATION
     Dosage: 2 Capsule
     Route: 065
  3. ESCITALOPRAM OXALATE [Concomitant]
     Indication: DRUG USE FOR UNKNOWN INDICATION
     Dosage: 10 Milligram
     Route: 048
     Dates: start: 20120605
  4. FLORASTOR [Concomitant]
     Indication: DRUG USE FOR UNKNOWN INDICATION
     Dosage: 500 Milligram
     Route: 048
     Dates: start: 20120608
  5. FUROSEMIDE [Concomitant]
     Indication: DRUG USE FOR UNKNOWN INDICATION
     Dosage: 20 Milligram
     Route: 048
     Dates: start: 20120608
  6. OMEPRAZOLE [Concomitant]
     Indication: DRUG USE FOR UNKNOWN INDICATION
     Dosage: 40 Milligram
     Route: 048
  7. REVLIMID [Suspect]
     Indication: MULTIPLE MYELOMA
     Dosage: 15 Milligram
     Route: 048
     Dates: start: 20120406
  8. REVLIMID [Suspect]
     Dosage: 15 Milligram
     Route: 048
     Dates: start: 20120604, end: 20120612
  9. DIGOXIN [Concomitant]
     Indication: AFIB
     Dosage: .125 Milligram
     Route: 048
     Dates: start: 20120308, end: 20120612
  10. DONEPEZIL HCL [Concomitant]
     Indication: DEMENTIA
     Dosage: 10 Milligram
     Route: 048
     Dates: start: 20110324, end: 20120218
  11. WARFARIN [Concomitant]
     Indication: COAGULATION DISORDER
     Dosage: 5 Milligram
     Route: 048
     Dates: start: 20120214, end: 20120612
  12. LASIX [Concomitant]
     Indication: FLUID OVERLOAD
     Dosage: 20 Milligram
     Route: 048
     Dates: start: 20120608, end: 20120612
  13. DILTIAZEM [Concomitant]
     Indication: AFIB
     Dosage: 120 Milligram
     Route: 048
     Dates: start: 20120306, end: 20120612
  14. DEXAMETHASONE [Concomitant]
     Indication: DRUG USE FOR UNKNOWN INDICATION
     Dosage: 4 Milligram
     Route: 048
     Dates: start: 20120605
  15. LEXAPRO [Concomitant]
     Indication: DRUG USE FOR UNKNOWN INDICATION
     Dosage: 10 Milligram
     Route: 065
  16. FERROUS SULFATE [Concomitant]
     Indication: DRUG USE FOR UNKNOWN INDICATION
     Dosage: 325 Milligram
     Route: 048
     Dates: start: 20111118
  17. KCL [Concomitant]
     Indication: DRUG USE FOR UNKNOWN INDICATION
     Dosage: 10 Millicuries
     Route: 048
     Dates: start: 20120608
  18. NAMENDA [Concomitant]
     Indication: DRUG USE FOR UNKNOWN INDICATION
     Dosage: 20 Milligram
     Route: 048
     Dates: start: 20111118
  19. TRAMADOL [Concomitant]
     Indication: PAIN
     Dosage: 50 Milligram
     Route: 048
     Dates: start: 20120405
  20. VITAMIN K [Concomitant]
     Indication: DRUG USE FOR UNKNOWN INDICATION
     Dosage: 5 Milligram
     Route: 048

REACTIONS (6)
  - Peritonitis [Fatal]
  - Gastrointestinal perforation [Fatal]
  - Renal failure [Fatal]
  - Urosepsis [Fatal]
  - International normalised ratio increased [Not Recovered/Not Resolved]
  - Dehydration [Not Recovered/Not Resolved]
